FAERS Safety Report 7208319-6 (Version None)
Quarter: 2010Q4

REPORT INFORMATION
  Report Type: 
  Country: None (occurrence: None)
  Receive Date: 20101230
  Receipt Date: 20101230
  Transmission Date: 20110411
  Serious: Yes (Death)
  Sender: FDA-Public Use
  Company Number: None

PATIENT
  Age: 40 Year
  Sex: Male
  Weight: 78.9259 kg

DRUGS (2)
  1. REMERON [Suspect]
     Indication: SUICIDAL IDEATION
     Dosage: REMERON BEDTIME 15MG
     Dates: start: 20101014, end: 20101027
  2. DEPAKOTE [Suspect]
     Indication: SUICIDAL IDEATION
     Dosage: DEPAKOTE DAILY + BEDTIME 500 MG
     Dates: start: 20101014, end: 20101027

REACTIONS (2)
  - GUN SHOT WOUND [None]
  - INTENTIONAL SELF-INJURY [None]
